FAERS Safety Report 7398179-5 (Version None)
Quarter: 2011Q2

REPORT INFORMATION
  Report Type: 
  Country: None (occurrence: None)
  Receive Date: 20110406
  Receipt Date: 20110331
  Transmission Date: 20111010
  Serious: Yes (Death, Life-Threatening, Hospitalization, Other)
  Sender: FDA-Public Use
  Company Number: US-CELGENEUS-163-21880-11010597

PATIENT
  Sex: Female

DRUGS (23)
  1. FOLATE [Concomitant]
     Dosage: 2 MILLIGRAM
     Route: 048
  2. CYANOCOBALAMIN [Concomitant]
     Dosage: 1 MILLIGRAM
     Route: 048
  3. MICRO-K [Concomitant]
     Dosage: 10 MILLIEQUIVALENTS
     Route: 048
  4. ASPIRIN [Concomitant]
     Dosage: 81 MILLIGRAM
     Route: 048
  5. PREMPRO [Concomitant]
     Route: 048
     Dates: start: 19900101
  6. KAPIDEX [Concomitant]
     Dosage: 60 MILLIGRAM
     Route: 048
     Dates: start: 20100901, end: 20100101
  7. CARAFATE [Concomitant]
     Route: 048
     Dates: start: 20100901, end: 20100101
  8. ORAVIG [Concomitant]
     Dosage: 50 MILLIGRAM
     Route: 002
  9. SYNTHROID [Concomitant]
     Dosage: 25 MICROGRAM
     Route: 048
  10. VANCOMYCIN [Concomitant]
     Route: 065
  11. REVLIMID [Suspect]
     Indication: AMYLOIDOSIS
  12. LASIX [Concomitant]
     Dosage: 20 MILLIGRAM
     Route: 048
     Dates: start: 20100901, end: 20100101
  13. POTASSIUM CHLORIDE [Concomitant]
     Route: 048
     Dates: start: 20100901, end: 20100101
  14. DEXAMETHASONE [Concomitant]
     Route: 065
     Dates: end: 20101025
  15. PROTONIX [Concomitant]
     Dosage: 40 MILLIGRAM
     Route: 048
  16. ZOSYN [Concomitant]
     Route: 065
  17. REVLIMID [Suspect]
     Indication: MULTIPLE MYELOMA
     Dosage: 10 MILLIGRAM
     Route: 048
     Dates: start: 20101027, end: 20101027
  18. AMIODARONE HCL [Concomitant]
     Dosage: 200 MILLIGRAM
     Route: 048
     Dates: start: 20100101, end: 20100101
  19. DOXYCYCLINE [Concomitant]
     Route: 065
  20. LASIX [Concomitant]
     Dosage: 40 MILLIGRAM
     Route: 051
     Dates: start: 20101101
  21. SALINE [Concomitant]
     Route: 051
     Dates: end: 20101101
  22. ACETAMINOPHEN [Concomitant]
     Route: 065
  23. ASPIRIN [Concomitant]
     Indication: ATRIAL FIBRILLATION
     Dosage: 325 MILLIGRAM
     Route: 048
     Dates: start: 20101030

REACTIONS (9)
  - ANAEMIA [None]
  - GASTROINTESTINAL HAEMORRHAGE [None]
  - PNEUMONIA [None]
  - ATRIAL FIBRILLATION [None]
  - PSEUDOMONAL SEPSIS [None]
  - CELLULITIS [None]
  - HYPOMANIA [None]
  - CARDIAC FAILURE CONGESTIVE [None]
  - NEUTROPENIA [None]
